FAERS Safety Report 4450593-3 (Version None)
Quarter: 2004Q3

REPORT INFORMATION
  Report Type: 
  Country: None (occurrence: None)
  Receive Date: 20040914
  Receipt Date: 20040908
  Transmission Date: 20050211
  Serious: Yes (Death, Hospitalization)
  Sender: FDA-Public Use
  Company Number: 200420498BWH

PATIENT
  Age: 45 Year
  Sex: Male

DRUGS (4)
  1. AVELOX [Suspect]
     Indication: SINUSITIS
     Dosage: NI, NI, ORAL
     Route: 048
  2. AUGMENTIN [Suspect]
     Indication: CHRONIC SINUSITIS
     Dosage: NI
  3. TEQUIN [Suspect]
     Indication: CHRONIC SINUSITIS
     Dosage: NI
  4. CLINDAMYCIN [Suspect]
     Indication: CHRONIC SINUSITIS
     Dosage: NI

REACTIONS (8)
  - ASCITES [None]
  - ASPARTATE AMINOTRANSFERASE INCREASED [None]
  - DIALYSIS [None]
  - HEPATIC ENZYME INCREASED [None]
  - HEPATIC FAILURE [None]
  - JAUNDICE [None]
  - LIVER DISORDER [None]
  - MULTI-ORGAN FAILURE [None]
